FAERS Safety Report 16058672 (Version 1)
Quarter: 2019Q1

REPORT INFORMATION
  Report Type: Spontaneous
  Country: KR (occurrence: KR)
  Receive Date: 20190311
  Receipt Date: 20190311
  Transmission Date: 20190418
  Serious: Yes (Other)
  Sender: FDA-Public Use
  Company Number: KR-ANIPHARMA-2019-KR-000009

PATIENT
  Age: 76 Year
  Sex: Male

DRUGS (2)
  1. BICALUTAMIDE. [Suspect]
     Active Substance: BICALUTAMIDE
     Indication: PROSTATE CANCER
  2. GOSSERELIN [Suspect]
     Active Substance: GOSERELIN
     Indication: PROSTATE CANCER

REACTIONS (1)
  - Squamous cell carcinoma [Unknown]
